FAERS Safety Report 9856482 (Version 3)
Quarter: 2014Q2

REPORT INFORMATION
  Report Type: Spontaneous
  Country: GB (occurrence: GB)
  Receive Date: 20140130
  Receipt Date: 20140401
  Transmission Date: 20141212
  Serious: Yes (Hospitalization)
  Sender: FDA-Public Use
  Company Number: GB-B.I. PHARMACEUTICALS,INC./RIDGEFIELD-2014-BI-03407UK

PATIENT
  Age: 69 Year
  Sex: Female

DRUGS (1)
  1. DABIGATRAN [Suspect]
     Indication: ATRIAL FIBRILLATION
     Dosage: 300 MG
     Route: 048
     Dates: start: 201311

REACTIONS (3)
  - Fall [Unknown]
  - Hip fracture [Not Recovered/Not Resolved]
  - Drug level increased [Not Recovered/Not Resolved]
